FAERS Safety Report 9890669 (Version 1)
Quarter: 2014Q1

REPORT INFORMATION
  Report Type: Spontaneous
  Country: GB (occurrence: None)
  Receive Date: 20140210
  Receipt Date: 20140210
  Transmission Date: 20141002
  Serious: Yes (Other)
  Sender: FDA-Public Use
  Company Number: AUR-APL-2014-01157

PATIENT
  Age: 81 Year
  Sex: Male
  Weight: 70 kg

DRUGS (2)
  1. AMLODIPINE [Suspect]
     Indication: HYPERTENSION
     Dosage: 5 MG (5 MG, 1 IN 1 D) , UNKNOWN
     Dates: start: 2011, end: 201401
  2. AMIAS [Suspect]
     Indication: HYPERTENSION
     Dosage: 4 MG (4 MG, 1 IN 1 D), UNKNOWN
     Dates: start: 2012, end: 2014

REACTIONS (7)
  - Choking [None]
  - Lip swelling [None]
  - Fatigue [None]
  - Hypersensitivity [None]
  - Throat irritation [None]
  - Somnolence [None]
  - Urinary tract disorder [None]
